FAERS Safety Report 25734563 (Version 1)
Quarter: 2025Q3

REPORT INFORMATION
  Report Type: Spontaneous
  Country: US (occurrence: US)
  Receive Date: 20250828
  Receipt Date: 20250828
  Transmission Date: 20251021
  Serious: Yes (Other)
  Sender: PROCTER AND GAMBLE
  Company Number: US-PROCTER_AND_GAMBLE-PH25013457

PATIENT
  Age: 35 Year
  Sex: Female

DRUGS (1)
  1. SODIUM FLUORIDE [Suspect]
     Active Substance: SODIUM FLUORIDE
     Dosage: TWICE A DAYS, 2 /DAY,USED EACH TIME-ENOUGH TO SWISH AROUND
     Dates: start: 202506, end: 202508

REACTIONS (1)
  - Tooth fracture [Unknown]

NARRATIVE: CASE EVENT DATE: 20250801
